FAERS Safety Report 19231223 (Version 1)
Quarter: 2021Q2

REPORT INFORMATION
  Report Type: Spontaneous
  Country: RS (occurrence: RS)
  Receive Date: 20210507
  Receipt Date: 20210507
  Transmission Date: 20210717
  Serious: Yes (Other)
  Sender: FDA-Public Use
  Company Number: NVSC2021RS095535

PATIENT
  Age: 73 Year
  Sex: Female

DRUGS (4)
  1. BISOPROLOL [Concomitant]
     Active Substance: BISOPROLOL
     Indication: PRODUCT USED FOR UNKNOWN INDICATION
     Dosage: 5 MG (1X1)
     Route: 065
  2. MEKINIST [Suspect]
     Active Substance: TRAMETINIB DIMETHYL SULFOXIDE
     Indication: METASTATIC MALIGNANT MELANOMA
     Dosage: 2 MG (1+0+0)
     Route: 065
     Dates: start: 20200821
  3. TAFINLAR [Suspect]
     Active Substance: DABRAFENIB MESYLATE
     Indication: METASTATIC MALIGNANT MELANOMA
     Dosage: 75 MG (2+0+2)
     Route: 065
     Dates: start: 20200821
  4. LOSARTAN. [Concomitant]
     Active Substance: LOSARTAN
     Indication: PRODUCT USED FOR UNKNOWN INDICATION
     Dosage: 50 MG (1X1)
     Route: 065

REACTIONS (23)
  - Pleural thickening [Unknown]
  - Lymphadenopathy [Unknown]
  - Pain in extremity [Recovered/Resolved]
  - Asthenia [Recovering/Resolving]
  - Melanocytic naevus [Unknown]
  - Seborrhoeic keratosis [Unknown]
  - Fibrin D dimer increased [Recovered/Resolved]
  - Thrombophlebitis [Recovered/Resolved]
  - Anaemia [Unknown]
  - Rash macular [Recovering/Resolving]
  - Pleural effusion [Unknown]
  - Deep vein thrombosis [Recovered/Resolved]
  - Peripheral swelling [Recovered/Resolved]
  - Soft tissue mass [Unknown]
  - Chills [Recovered/Resolved]
  - Blood lactate dehydrogenase increased [Unknown]
  - Weight decreased [Unknown]
  - Blood pressure increased [Unknown]
  - Malaise [Recovering/Resolving]
  - Pyrexia [Recovered/Resolved]
  - Fatigue [Recovering/Resolving]
  - Constipation [Recovered/Resolved]
  - Dry skin [Unknown]

NARRATIVE: CASE EVENT DATE: 20200912
